FAERS Safety Report 4524415-6 (Version None)
Quarter: 2004Q4

REPORT INFORMATION
  Report Type: 
  Country: None (occurrence: None)
  Receive Date: 20041117
  Receipt Date: 20031014
  Transmission Date: 20050328
  Serious: Yes (Hospitalization)
  Sender: FDA-Public Use
  Company Number: SUS1-2003-00387

PATIENT
  Age: 63 Year
  Sex: Female

DRUGS (9)
  1. CARBATROL [Suspect]
     Indication: BIPOLAR DISORDER
     Dosage: 300 MG, 2X/DAY:BID  ;  300 MG, 1X/1DAY:QD
     Dates: start: 20030801, end: 20031013
  2. CARBATROL [Suspect]
     Indication: BIPOLAR DISORDER
     Dosage: 300 MG, 2X/DAY:BID  ;  300 MG, 1X/1DAY:QD
     Dates: start: 20031014
  3. LITHIUM CARBONATE [Concomitant]
  4. ACTOSE 45 [Concomitant]
  5. DIAVAN [Concomitant]
  6. LANTUS [Concomitant]
  7. SYNTHROID [Concomitant]
  8. REPAGLINIDE (REPAGLINIDE) [Concomitant]
  9. SEROQUEL [Concomitant]

REACTIONS (5)
  - COUGH [None]
  - DRY MOUTH [None]
  - DYSPNOEA [None]
  - FALL [None]
  - PNEUMONIA [None]
